FAERS Safety Report 5600918-8 (Version None)
Quarter: 2008Q1

REPORT INFORMATION
  Report Type: 
  Country: None (occurrence: None)
  Receive Date: 20080124
  Receipt Date: 20080118
  Transmission Date: 20080703
  Serious: Yes (Death)
  Sender: FDA-Public Use
  Company Number: IN-JNJFOC-20080104399

PATIENT
  Age: 65 Year
  Sex: Male

DRUGS (10)
  1. TAVANIC [Suspect]
     Indication: INFECTION PROPHYLAXIS
     Route: 065
  2. PIPERACILLIN AND TAZOBACTAM [Concomitant]
     Route: 065
  3. CLINDAMYCIN HCL [Concomitant]
     Route: 065
  4. PANTOPRAZOLE [Concomitant]
     Route: 042
  5. DELTAPARIN [Concomitant]
     Route: 058
  6. DICLOFENAC SODIUM [Concomitant]
     Route: 054
  7. TRAMADOL HCL [Concomitant]
     Route: 042
  8. DEXTROSE [Concomitant]
     Route: 042
  9. CEFTRIAXONE [Concomitant]
     Route: 042
  10. METRONIDAZOLE [Concomitant]
     Route: 065

REACTIONS (3)
  - BRAIN INJURY [None]
  - CONVULSION [None]
  - HYPOGLYCAEMIA [None]
